FAERS Safety Report 21294611 (Version 2)
Quarter: 2022Q3

REPORT INFORMATION
  Report Type: Report from Study
  Country: IN (occurrence: IN)
  Receive Date: 20220905
  Receipt Date: 20220920
  Transmission Date: 20221027
  Serious: Yes (Hospitalization, Other)
  Sender: FDA-Public Use
  Company Number: IN-NOVARTISPH-NVSC2022IN195040

PATIENT
  Age: 30 Year
  Sex: Male
  Weight: 48 kg

DRUGS (13)
  1. SIMULECT [Suspect]
     Active Substance: BASILIXIMAB
     Indication: Renal transplant
     Dosage: 20 MG
     Route: 065
     Dates: start: 20220803, end: 20220807
  2. SIMULECT [Suspect]
     Active Substance: BASILIXIMAB
     Dosage: UNK
     Route: 065
     Dates: start: 20220807
  3. PREDNISOLONE [Concomitant]
     Active Substance: PREDNISOLONE
     Indication: Product used for unknown indication
     Dosage: 30 MG, QD (8 AM WITH MILK FOR 7 DAYS)
     Route: 065
  4. MYCOFIT-S [Concomitant]
     Indication: Product used for unknown indication
     Dosage: 720 MG, BID (8 AM AND 8 PM FOR 7 DAYS)
     Route: 065
  5. TAKFA [Concomitant]
     Indication: Product used for unknown indication
     Dosage: 5.5 MG, BID (8 AM TO 08 PM FOR 07 DAYS)
     Route: 065
  6. SEPTRA DS [Concomitant]
     Active Substance: SULFAMETHOXAZOLE\TRIMETHOPRIM
     Indication: Product used for unknown indication
     Dosage: UNK
     Route: 065
  7. SHELCAL M [Concomitant]
     Indication: Product used for unknown indication
     Dosage: UNK, TID (FOR 7 DAYS)
     Route: 065
  8. PAN [Concomitant]
     Indication: Product used for unknown indication
     Dosage: 40 MG, QD (AT AM BEFORE FOOD FOR 7 DAYS)
     Route: 065
  9. PARA [Concomitant]
     Indication: Product used for unknown indication
     Dosage: 500 MG (SOS) FOR 7 DAYS
     Route: 065
  10. MAGMAX [Concomitant]
     Indication: Product used for unknown indication
     Dosage: 400 MG, TID (FOR 7 DAYS)
     Route: 065
  11. PROLOMET [Concomitant]
     Indication: Product used for unknown indication
     Dosage: 50 MG, QD (FOR 7 DAYS)
     Route: 065
  12. CHLORHEXIDINE [Concomitant]
     Active Substance: CHLORHEXIDINE
     Indication: Product used for unknown indication
     Dosage: UNK (FOR 7 DAYS)
     Route: 065
  13. ARKAMIN [Concomitant]
     Indication: Product used for unknown indication
     Route: 065

REACTIONS (7)
  - Kidney transplant rejection [Unknown]
  - Proteinuria [Unknown]
  - Glomerulonephritis [Unknown]
  - Tubulointerstitial nephritis [Unknown]
  - Lymphocytic infiltration [Unknown]
  - Pancreatitis [Unknown]
  - Anaemia [Unknown]

NARRATIVE: CASE EVENT DATE: 20220813
